FAERS Safety Report 5034948-4 (Version None)
Quarter: 2006Q2

REPORT INFORMATION
  Report Type: 
  Country: None (occurrence: None)
  Receive Date: 20060623
  Receipt Date: 20060623
  Transmission Date: 20061013
  Serious: Yes (Life-Threatening, Hospitalization, Other)
  Sender: FDA-Public Use
  Company Number: None

PATIENT
  Age: 39 Year
  Sex: Female
  Weight: 77.1115 kg

DRUGS (1)
  1. LAMICTAL [Suspect]
     Indication: BIPOLAR I DISORDER
     Dosage: CURRENTLY 100 MG DAY DAILY PO
     Route: 048
     Dates: start: 20051201, end: 20060622

REACTIONS (4)
  - ABDOMINAL DISTENSION [None]
  - HAEMORRHAGE [None]
  - HOT FLUSH [None]
  - SUICIDAL IDEATION [None]
